FAERS Safety Report 5407500-6 (Version None)
Quarter: 2007Q3

REPORT INFORMATION
  Report Type: 
  Country: None (occurrence: None)
  Receive Date: 20070803
  Receipt Date: 20070725
  Transmission Date: 20080115
  Serious: Yes (Hospitalization)
  Sender: FDA-Public Use
  Company Number: 2007SP014016

PATIENT
  Sex: Male

DRUGS (1)
  1. DESLORATADINE [Suspect]
     Indication: HYPERSENSITIVITY
     Dosage: 5 MG; PO
     Route: 048

REACTIONS (7)
  - ABDOMINAL PAIN [None]
  - ANAPHYLACTIC REACTION [None]
  - DIARRHOEA [None]
  - FALL [None]
  - HYPERHIDROSIS [None]
  - NAUSEA [None]
  - SHOCK [None]
